FAERS Safety Report 9250256 (Version 1)
Quarter: 2013Q2

REPORT INFORMATION
  Report Type: Report from Study
  Country: CA (occurrence: CA)
  Receive Date: 20130424
  Receipt Date: 20130424
  Transmission Date: 20140414
  Serious: Yes (Death)
  Sender: FDA-Public Use
  Company Number: CA-ROCHE-1217722

PATIENT
  Age: 73 Year
  Sex: Female
  Weight: 61.7 kg

DRUGS (2)
  1. RITUXAN [Suspect]
     Indication: ACQUIRED HAEMOPHILIA
     Dosage: WEEKLY
     Route: 042
     Dates: start: 20121219, end: 20130110
  2. RITUXAN [Suspect]
     Indication: OFF LABEL USE

REACTIONS (1)
  - Death [Fatal]
